FAERS Safety Report 19250175 (Version 2)
Quarter: 2021Q2

REPORT INFORMATION
  Report Type: Report from Study
  Country: AU (occurrence: AU)
  Receive Date: 20210512
  Receipt Date: 20210517
  Transmission Date: 20210717
  Serious: Yes (Other)
  Sender: FDA-Public Use
  Company Number: AU-PFIZER INC-2010035578

PATIENT
  Age: 34 Year
  Sex: Male

DRUGS (5)
  1. DOMPERIDONE [Interacting]
     Active Substance: DOMPERIDONE
     Indication: NAUSEA
     Dosage: UNK
  2. MORPHINE SULFATE. [Suspect]
     Active Substance: MORPHINE SULFATE
     Indication: ANALGESIC THERAPY
     Dosage: 540 MG, DAILY
     Route: 051
  3. MORPHINE SULFATE. [Interacting]
     Active Substance: MORPHINE SULFATE
     Dosage: 950 MG, DAILY
     Route: 048
  4. OXYCODONE HYDROCHLORIDE. [Interacting]
     Active Substance: OXYCODONE HYDROCHLORIDE
     Indication: ANALGESIC THERAPY
     Dosage: UNK
  5. NAPROXEN. [Interacting]
     Active Substance: NAPROXEN
     Dosage: UNK

REACTIONS (2)
  - Myoclonus [Unknown]
  - Drug interaction [Unknown]
